FAERS Safety Report 9237177 (Version 1)
Quarter: 2013Q2

REPORT INFORMATION
  Report Type: Spontaneous
  Country: US (occurrence: US)
  Receive Date: 20130417
  Receipt Date: 20130417
  Transmission Date: 20140414
  Serious: No
  Sender: FDA-Public Use
  Company Number: US-PFIZER INC-2013117903

PATIENT
  Age: 59 Year
  Sex: Female
  Weight: 79.37 kg

DRUGS (6)
  1. GABAPENTIN [Suspect]
     Indication: FIBROMYALGIA
     Dosage: 300 MG, 3X/DAY
  2. GABAPENTIN [Suspect]
     Dosage: 1500 MG, 1X/DAY
     Dates: start: 2012, end: 2012
  3. GABAPENTIN [Suspect]
     Dosage: UNK
     Dates: start: 201303
  4. LYRICA [Suspect]
     Indication: FIBROMYALGIA
     Dosage: 75 MG, 2X/DAY
     Dates: start: 201304
  5. KLONOPIN [Suspect]
     Indication: DEPRESSION
     Dosage: ONE AND HALF TABLET, 1X/DAY
  6. KLONOPIN [Suspect]
     Indication: ANXIETY

REACTIONS (6)
  - Arthritis [Unknown]
  - Local swelling [Unknown]
  - Abdominal distension [Unknown]
  - Local swelling [Unknown]
  - Vitamin B12 increased [Unknown]
  - Drug ineffective [Unknown]
